FAERS Safety Report 10090335 (Version 4)
Quarter: 2015Q3

REPORT INFORMATION
  Report Type: Spontaneous
  Country: US (occurrence: US)
  Receive Date: 20140421
  Receipt Date: 20150817
  Transmission Date: 20151125
  Serious: No
  Sender: FDA-Public Use
  Company Number: US-GILEAD-2014-0100081

PATIENT
  Age: 32 Year
  Sex: Female

DRUGS (1)
  1. LETAIRIS [Suspect]
     Active Substance: AMBRISENTAN
     Indication: PULMONARY ARTERIAL HYPERTENSION
     Dosage: 5 MG, QD
     Route: 065
     Dates: start: 20130613

REACTIONS (6)
  - Weight increased [Unknown]
  - Body temperature decreased [Unknown]
  - Dyspnoea [Unknown]
  - Migraine [Unknown]
  - Condition aggravated [Unknown]
  - Fatigue [Unknown]
